FAERS Safety Report 8936312 (Version 2)
Quarter: 2013Q1

REPORT INFORMATION
  Report Type: Report from Study
  Country: US (occurrence: US)
  Receive Date: 20121130
  Receipt Date: 20130206
  Transmission Date: 20140127
  Serious: Yes (Other)
  Sender: FDA-Public Use
  Company Number: US-JNJFOC-20121111379

PATIENT
  Sex: Male
  Weight: 83.92 kg

DRUGS (16)
  1. REMICADE [Suspect]
     Indication: PSORIATIC ARTHROPATHY
     Route: 042
     Dates: start: 20100711
  2. REMICADE [Suspect]
     Indication: PSORIATIC ARTHROPATHY
     Route: 042
     Dates: start: 20121101
  3. HUMIRA [Concomitant]
     Route: 065
  4. VITAMIN C [Concomitant]
     Route: 065
  5. ASPIRIN [Concomitant]
     Route: 065
  6. PREDNISONE [Concomitant]
     Route: 065
  7. LISINOPRIL [Concomitant]
     Dosage: 1 TABLET
     Route: 065
  8. DEXILANT [Concomitant]
     Dosage: 1 TABLET
     Route: 065
  9. PRAVASTATIN SODIUM [Concomitant]
     Route: 065
  10. SERTRALINE HCL [Concomitant]
     Route: 065
  11. SERTRALINE HCL [Concomitant]
     Dosage: 1 TABLET
     Route: 065
  12. TRAMADOL HCL [Concomitant]
     Route: 065
  13. HYDROCORTISONE VALERATE [Concomitant]
     Dosage: 7 TO 10 DAYS
     Route: 065
  14. ANTHRALIN [Concomitant]
     Dosage: 3-4 TIMES
     Route: 065
  15. ALL OTHER THERAPEUTIC PRODUCTS [Concomitant]
     Dosage: APPLY 1-2GM, 3-4 TIMES PER DAY.
     Route: 065
  16. NUCYNTA [Concomitant]
     Dosage: 1 OR 2 TABLETS
     Route: 065

REACTIONS (3)
  - Hernia [Not Recovered/Not Resolved]
  - Blood urine present [Not Recovered/Not Resolved]
  - Infection [Not Recovered/Not Resolved]
